FAERS Safety Report 7326091-6 (Version None)
Quarter: 2011Q1

REPORT INFORMATION
  Report Type: 
  Country: None (occurrence: None)
  Receive Date: 20110302
  Receipt Date: 20110221
  Transmission Date: 20110831
  Serious: Yes (Hospitalization)
  Sender: FDA-Public Use
  Company Number: DE-ASTRAZENECA-2011SE09265

PATIENT
  Age: 900 Month
  Sex: Female
  Weight: 58 kg

DRUGS (5)
  1. ZOMETA [Concomitant]
     Indication: METASTASES TO BONE
     Route: 042
     Dates: start: 20100101
  2. TAMOXIFEN AL [Concomitant]
  3. ZOLEDRONATE [Concomitant]
  4. FASLODEX [Suspect]
     Indication: BREAST CANCER METASTATIC
     Route: 030
     Dates: start: 20101028, end: 20101111
  5. LUCENTIS [Concomitant]
     Indication: MACULAR DEGENERATION

REACTIONS (23)
  - THIRST [None]
  - BLOOD LACTATE DEHYDROGENASE INCREASED [None]
  - BLOOD CREATINE PHOSPHOKINASE MB INCREASED [None]
  - NAUSEA [None]
  - DRY MOUTH [None]
  - MUCOSAL INFLAMMATION [None]
  - BLOOD CREATININE DECREASED [None]
  - VOMITING [None]
  - DIZZINESS [None]
  - MUSCLE ATROPHY [None]
  - ANXIETY [None]
  - NIGHTMARE [None]
  - SYNCOPE [None]
  - BLOOD CREATINE PHOSPHOKINASE INCREASED [None]
  - PLATELET COUNT DECREASED [None]
  - MELAENA [None]
  - HAEMOGLOBIN DECREASED [None]
  - HYPERKINESIA [None]
  - CONSTIPATION [None]
  - C-REACTIVE PROTEIN INCREASED [None]
  - BLOOD ALKALINE PHOSPHATASE INCREASED [None]
  - WEIGHT DECREASED [None]
  - DIARRHOEA [None]
